FAERS Safety Report 9551293 (Version 2)
Quarter: 2013Q3

REPORT INFORMATION
  Report Type: Spontaneous
  Country: IT (occurrence: IT)
  Receive Date: 20130925
  Receipt Date: 20130927
  Transmission Date: 20140515
  Serious: Yes (Hospitalization)
  Sender: FDA-Public Use
  Company Number: IT-RANBAXY-2013RR-73234

PATIENT
  Age: 53 Year
  Sex: Female

DRUGS (4)
  1. PARACETAMOL [Suspect]
     Indication: PYREXIA
     Dosage: 1 DF, PRN
     Route: 048
     Dates: start: 20130710, end: 20130724
  2. METAKELFIN [Suspect]
     Indication: TOXOPLASMOSIS
     Dosage: 3 DOSAGE UNITS, DAILY
     Route: 048
     Dates: start: 20130710, end: 20130721
  3. ROVAMICINA [Suspect]
     Indication: TOXOPLASMOSIS
     Dosage: 3 DOSAGE UNITS, DAILY
     Route: 048
     Dates: start: 20130710, end: 20130724
  4. PLASIL [Suspect]
     Indication: VOMITING
     Dosage: 1 DF, COMPLETE
     Route: 065
     Dates: start: 20130716, end: 20130716

REACTIONS (3)
  - Adverse drug reaction [Recovering/Resolving]
  - Pruritus [Recovering/Resolving]
  - Rash generalised [Recovering/Resolving]
